FAERS Safety Report 18835609 (Version 1)
Quarter: 2021Q1

REPORT INFORMATION
  Report Type: Spontaneous
  Country: US (occurrence: US)
  Receive Date: 20210203
  Receipt Date: 20210203
  Transmission Date: 20210419
  Serious: No
  Sender: FDA-Public Use
  Company Number: US-ALLERGAN-2001178US

PATIENT
  Sex: Female

DRUGS (5)
  1. MIRABEGRON [Suspect]
     Active Substance: MIRABEGRON
     Indication: HYPERTONIC BLADDER
     Dosage: UNK
     Route: 048
     Dates: start: 2017, end: 2018
  2. MIRABEGRON [Suspect]
     Active Substance: MIRABEGRON
     Dosage: UNK
     Route: 048
     Dates: start: 2018
  3. VESICARE [Concomitant]
     Active Substance: SOLIFENACIN SUCCINATE
  4. BOTOX [Suspect]
     Active Substance: ONABOTULINUMTOXINA
     Indication: PRODUCT USED FOR UNKNOWN INDICATION
     Dosage: UNK, SINGLE
     Route: 065
     Dates: start: 201702, end: 201702
  5. OXYBUTYNIN. [Concomitant]
     Active Substance: OXYBUTYNIN CHLORIDE
     Dosage: UNK

REACTIONS (6)
  - Vulvovaginal pain [Recovered/Resolved]
  - Loss of personal independence in daily activities [Unknown]
  - Pregnancy [Unknown]
  - Abdominal pain [Recovered/Resolved]
  - Anxiety [Unknown]
  - Weight decreased [Unknown]

NARRATIVE: CASE EVENT DATE: 2017
